FAERS Safety Report 9329540 (Version 1)
Quarter: 2013Q2

REPORT INFORMATION
  Report Type: Spontaneous
  Country: US (occurrence: US)
  Receive Date: 20130604
  Receipt Date: 20130604
  Transmission Date: 20140414
  Serious: Yes (Other)
  Sender: FDA-Public Use
  Company Number: US-SANOFI-AVENTIS-2013SA029237

PATIENT
  Age: 61 Year
  Sex: Female

DRUGS (4)
  1. LANTUS [Suspect]
     Indication: DIABETES MELLITUS
     Dosage: TAKEN FROM: 3-4 YEARS AGO
     Route: 051
  2. APIDRA [Suspect]
     Indication: DIABETES MELLITUS
     Dosage: DOSE: SLIDING SCALE 1-10 UNITS AT MEAL DEPENDING ON BLOOD SUGAR
     Route: 058
  3. METFORMIN [Concomitant]
  4. GLYBURIDE [Concomitant]

REACTIONS (7)
  - Hypoglycaemia [Unknown]
  - Gastroenteritis viral [Unknown]
  - Blood glucose decreased [Unknown]
  - Headache [Unknown]
  - Tremor [Unknown]
  - Blood glucose increased [Unknown]
  - Vision blurred [Unknown]
